FAERS Safety Report 5032089-3 (Version None)
Quarter: 2006Q2

REPORT INFORMATION
  Report Type: 
  Country: None (occurrence: None)
  Receive Date: 20060619
  Receipt Date: 20060609
  Transmission Date: 20061013
  Serious: Yes (Hospitalization)
  Sender: FDA-Public Use
  Company Number: 200612405GDS

PATIENT
  Age: 13 Year
  Sex: Male

DRUGS (3)
  1. PRAZIQUANTEL [Suspect]
     Indication: PARASITIC INFECTION INTESTINAL
  2. IVERMECTIN [Suspect]
     Indication: PARASITIC INFECTION INTESTINAL
  3. ALBENDAZOLE [Suspect]
     Indication: PARASITIC INFECTION INTESTINAL

REACTIONS (11)
  - ABDOMINAL PAIN [None]
  - ANGIONEUROTIC OEDEMA [None]
  - CONJUNCTIVAL HYPERAEMIA [None]
  - HEART RATE INCREASED [None]
  - MAZZOTTI REACTION [None]
  - MYALGIA [None]
  - OEDEMA PERIPHERAL [None]
  - PENILE SWELLING [None]
  - PYREXIA [None]
  - RESPIRATORY RATE INCREASED [None]
  - VOMITING [None]
